FAERS Safety Report 5527536-4 (Version None)
Quarter: 2007Q4

REPORT INFORMATION
  Report Type: 
  Country: None (occurrence: None)
  Receive Date: 20071121
  Receipt Date: 20071115
  Transmission Date: 20080405
  Serious: No
  Sender: FDA-Public Use
  Company Number: 20073445

PATIENT
  Sex: Female

DRUGS (3)
  1. LIORESAL [Suspect]
     Indication: MUSCLE SPASTICITY
     Dosage: MCG, DAILY, INTRATHECAL
     Route: 037
  2. ORAL BACLOFEN [Concomitant]
  3. 12 UNSPECIFIED MUSCLES RELAXANTS [Concomitant]

REACTIONS (10)
  - ABASIA [None]
  - CATHETER SITE PAIN [None]
  - DRUG INEFFECTIVE [None]
  - FALL [None]
  - HYPOTONIA [None]
  - ILL-DEFINED DISORDER [None]
  - MUSCLE SPASMS [None]
  - MUSCLE SPASTICITY [None]
  - PAIN [None]
  - TOOTH FRACTURE [None]
